FAERS Safety Report 12691920 (Version 1)
Quarter: 2016Q3

REPORT INFORMATION
  Report Type: Spontaneous
  Country: CA (occurrence: CA)
  Receive Date: 20160827
  Receipt Date: 20160827
  Transmission Date: 20161109
  Serious: Yes (Other)
  Sender: FDA-Public Use
  Company Number: CA-AMGEN-CANSP2016110405

PATIENT
  Age: 61 Year
  Sex: Male

DRUGS (7)
  1. ENBREL [Suspect]
     Active Substance: ETANERCEPT
     Indication: ANKYLOSING SPONDYLITIS
     Dosage: 50 MG, QWK
     Route: 058
  2. REMICADE [Suspect]
     Active Substance: INFLIXIMAB
     Indication: PRODUCT USED FOR UNKNOWN INDICATION
     Dosage: 200 MG, UNK
     Route: 042
  3. METHOTREXATE SODIUM. [Suspect]
     Active Substance: METHOTREXATE SODIUM
     Dosage: 25 MG, QWK
     Route: 058
  4. MOTRIN [Concomitant]
     Active Substance: IBUPROFEN
     Dosage: UNK
  5. VIOXX [Suspect]
     Active Substance: ROFECOXIB
     Indication: PRODUCT USED FOR UNKNOWN INDICATION
     Dosage: 12.5 MG, QD
     Route: 065
  6. MOBICOX [Concomitant]
     Active Substance: MELOXICAM
     Dosage: UNK UNK, QD
     Route: 048
  7. METHOTREXATE SODIUM. [Suspect]
     Active Substance: METHOTREXATE SODIUM
     Indication: PRODUCT USED FOR UNKNOWN INDICATION
     Dosage: 10 MG, QWK
     Route: 048

REACTIONS (5)
  - Rheumatoid arthritis [Recovered/Resolved]
  - Iritis [Recovered/Resolved]
  - Drug ineffective [Recovered/Resolved]
  - Hypertension [Recovered/Resolved]
  - Nervous system disorder [Recovered/Resolved]
